FAERS Safety Report 10264678 (Version 1)
Quarter: 2014Q2

REPORT INFORMATION
  Report Type: Spontaneous
  Country: US (occurrence: US)
  Receive Date: 20140627
  Receipt Date: 20140627
  Transmission Date: 20141212
  Serious: No
  Sender: FDA-Public Use
  Company Number: US-GLAXOSMITHKLINE-A1065400A

PATIENT
  Age: 58 Year
  Sex: Female
  Weight: 55.7 kg

DRUGS (3)
  1. TAFINLAR [Suspect]
     Indication: MALIGNANT MELANOMA
     Dosage: 150MG TWICE PER DAY
     Route: 048
     Dates: start: 20131211
  2. TYLENOL [Concomitant]
  3. CALCIUM WITH VITAMIN D [Concomitant]

REACTIONS (8)
  - Vaginal discharge [Recovering/Resolving]
  - Haemorrhoids [Recovering/Resolving]
  - Vaginal disorder [Recovering/Resolving]
  - Rash [Recovering/Resolving]
  - Vaginal haemorrhage [Recovering/Resolving]
  - Pain [Recovering/Resolving]
  - Skin exfoliation [Recovering/Resolving]
  - Local swelling [Recovering/Resolving]
